FAERS Safety Report 17024874 (Version 3)
Quarter: 2019Q4

REPORT INFORMATION
  Report Type: Spontaneous
  Country: US (occurrence: US)
  Receive Date: 20191113
  Receipt Date: 20191124
  Transmission Date: 20200122
  Serious: Yes (Other)
  Sender: FDA-Public Use
  Company Number: US-BEH-2019109365

PATIENT
  Age: 60 Year
  Sex: Female
  Weight: 58.05 kg

DRUGS (17)
  1. ABILIFY [Concomitant]
     Active Substance: ARIPIPRAZOLE
  2. BELSOMRA [Concomitant]
     Active Substance: SUVOREXANT
  3. NATURE-THROID [Concomitant]
     Active Substance: THYROID, PORCINE
  4. VITAMIN D3 [Concomitant]
     Active Substance: CHOLECALCIFEROL
  5. ZANAFLEX [Concomitant]
     Active Substance: TIZANIDINE HYDROCHLORIDE
  6. PRILOSEC [Concomitant]
     Active Substance: OMEPRAZOLE MAGNESIUM
  7. ZANTAC [Concomitant]
     Active Substance: RANITIDINE HYDROCHLORIDE
  8. ZOLOFT [Concomitant]
     Active Substance: SERTRALINE HYDROCHLORIDE
  9. DEXILANT [Concomitant]
     Active Substance: DEXLANSOPRAZOLE
     Dosage: UNK
     Route: 065
     Dates: start: 201910
  10. BUSPIRONE HCL [Concomitant]
     Active Substance: BUSPIRONE HYDROCHLORIDE
  11. FENTANYL. [Concomitant]
     Active Substance: FENTANYL
  12. KLONOPIN [Concomitant]
     Active Substance: CLONAZEPAM
  13. PROAIR HFA [Concomitant]
     Active Substance: ALBUTEROL SULFATE
  14. HIZENTRA [Suspect]
     Active Substance: HUMAN IMMUNOGLOBULIN G
     Indication: SELECTIVE IGG SUBCLASS DEFICIENCY
     Dosage: 6 GRAM, QW
     Route: 058
     Dates: start: 201910
  15. NORCO [Concomitant]
     Active Substance: ACETAMINOPHEN\HYDROCODONE BITARTRATE
  16. HIZENTRA [Suspect]
     Active Substance: HUMAN IMMUNOGLOBULIN G
     Dosage: 6 GRAMS, TOT
     Route: 058
     Dates: start: 20191106, end: 20191106
  17. INDERAL LA [Concomitant]
     Active Substance: PROPRANOLOL HYDROCHLORIDE

REACTIONS (9)
  - Dehydration [Recovered/Resolved]
  - Dizziness [Recovered/Resolved]
  - Asthenia [Recovered/Resolved]
  - Dyspepsia [Unknown]
  - Gastrooesophageal reflux disease [Unknown]
  - Neuropathy peripheral [Unknown]
  - Limb discomfort [Not Recovered/Not Resolved]
  - Nausea [Not Recovered/Not Resolved]
  - Blood pressure decreased [Recovered/Resolved]

NARRATIVE: CASE EVENT DATE: 20191106
